FAERS Safety Report 18518512 (Version 5)
Quarter: 2022Q1

REPORT INFORMATION
  Report Type: Spontaneous
  Country: US (occurrence: US)
  Receive Date: 20201118
  Receipt Date: 20220307
  Transmission Date: 20220424
  Serious: No
  Sender: FDA-Public Use
  Company Number: US-PFIZER INC-2020449018

PATIENT
  Age: 13 Year
  Sex: Male
  Weight: 37.19 kg

DRUGS (2)
  1. GENOTROPIN [Suspect]
     Active Substance: SOMATROPIN
     Indication: Growth hormone deficiency
     Dosage: 1.8 MG, DAILY [INJECTED DAILY]
     Dates: start: 202006
  2. GENOTROPIN [Suspect]
     Active Substance: SOMATROPIN
     Dosage: 2.4 MG, DAILY

REACTIONS (3)
  - Drug dose omission by device [Unknown]
  - Device issue [Unknown]
  - Device leakage [Unknown]
